FAERS Safety Report 10164239 (Version 2)
Quarter: 2014Q2

REPORT INFORMATION
  Report Type: Spontaneous
  Country: US (occurrence: US)
  Receive Date: 20140510
  Receipt Date: 20140510
  Transmission Date: 20141212
  Serious: No
  Sender: FDA-Public Use
  Company Number: US-BRISTOL-MYERS SQUIBB COMPANY-20035192

PATIENT
  Age: 46 Year
  Sex: Female
  Weight: 147.84 kg

DRUGS (3)
  1. BYETTA [Suspect]
     Indication: TYPE 2 DIABETES MELLITUS
  2. METFORMIN HCL TABS 500MG [Concomitant]
  3. LANTUS [Concomitant]

REACTIONS (1)
  - Drug administration error [Unknown]
